FAERS Safety Report 5872118-8 (Version None)
Quarter: 2008Q3

REPORT INFORMATION
  Report Type: 
  Country: None (occurrence: None)
  Receive Date: 20080905
  Receipt Date: 20080829
  Transmission Date: 20090109
  Serious: Yes (Hospitalization)
  Sender: FDA-Public Use
  Company Number: B0535730A

PATIENT
  Age: 63 Year
  Sex: Female

DRUGS (6)
  1. SEROXAT [Suspect]
     Indication: ANXIETY
     Route: 048
     Dates: start: 20080601, end: 20080606
  2. VAGIFEM [Concomitant]
     Route: 067
  3. SELOKEN [Concomitant]
  4. KAJOS [Concomitant]
     Route: 048
  5. LEVOTHYROXINE SODIUM [Concomitant]
     Route: 048
  6. CALCICHEW D3 [Concomitant]

REACTIONS (4)
  - DIARRHOEA [None]
  - GENERAL PHYSICAL HEALTH DETERIORATION [None]
  - HYPONATRAEMIA [None]
  - URINE OUTPUT DECREASED [None]
